FAERS Safety Report 24197129 (Version 1)
Quarter: 2024Q3

REPORT INFORMATION
  Report Type: Spontaneous
  Country: CN (occurrence: CN)
  Receive Date: 20240810
  Receipt Date: 20240810
  Transmission Date: 20241017
  Serious: Yes (Hospitalization, Other)
  Sender: BAXTER
  Company Number: None

PATIENT
  Age: 61 Year
  Sex: Female
  Weight: 63 kg

DRUGS (4)
  1. OLIVE OIL\SOYBEAN OIL [Suspect]
     Active Substance: OLIVE OIL\SOYBEAN OIL
     Indication: Nutritional supplementation
     Dosage: 250 ML, ONCE DAILY
     Route: 041
     Dates: start: 20240720, end: 20240721
  2. FLURBIPROFEN AXETIL [Suspect]
     Active Substance: FLURBIPROFEN AXETIL
     Indication: Analgesic therapy
     Dosage: 50 MG (DURING SURGERY)
     Route: 065
     Dates: start: 20240720
  3. FLURBIPROFEN AXETIL [Suspect]
     Active Substance: FLURBIPROFEN AXETIL
     Dosage: 100 MG, TWICE A DAY (AFTER SURGERY)
     Route: 041
     Dates: start: 20240720, end: 20240721
  4. CEFUROXIME SODIUM [Suspect]
     Active Substance: CEFUROXIME SODIUM
     Indication: Anti-infective therapy
     Dosage: 1.5 G ONCE A DAY
     Route: 041
     Dates: start: 20240720, end: 20240721

REACTIONS (1)
  - Drug-induced liver injury [Recovering/Resolving]

NARRATIVE: CASE EVENT DATE: 20240721
